FAERS Safety Report 5366572-8 (Version None)
Quarter: 2007Q2

REPORT INFORMATION
  Report Type: 
  Country: None (occurrence: None)
  Receive Date: 20070622
  Receipt Date: 20070607
  Transmission Date: 20071010
  Serious: No
  Sender: FDA-Public Use
  Company Number: FR-PFIZER INC-2007048047

PATIENT
  Age: 43 Year
  Sex: Female
  Weight: 70 kg

DRUGS (4)
  1. CHAMPIX [Suspect]
     Indication: TOBACCO ABUSE
     Route: 048
     Dates: start: 20070312, end: 20070412
  2. HALOPERIDOL DECANOATE [Concomitant]
  3. LORMETAZEPAM [Concomitant]
  4. ESOMEPRAZOLE MAGNESIUM [Concomitant]

REACTIONS (3)
  - ALANINE AMINOTRANSFERASE INCREASED [None]
  - ASPARTATE AMINOTRANSFERASE INCREASED [None]
  - ASTHENIA [None]
